FAERS Safety Report 8577974-0 (Version None)
Quarter: 2012Q3

REPORT INFORMATION
  Report Type: 
  Country: None (occurrence: None)
  Receive Date: 20120808
  Receipt Date: 20120731
  Transmission Date: 20120928
  Serious: Yes (Hospitalization, Other)
  Sender: FDA-Public Use
  Company Number: JP-SHIRE-ALL1-2011-01747

PATIENT
  Age: 81 Year
  Sex: Female

DRUGS (16)
  1. ISOSORBIDE MONONITRATE [Concomitant]
     Indication: PRODUCT USED FOR UNKNOWN INDICATION
     Dosage: 40 MG, UNKNOWN
     Route: 048
  2. TICLOPIDINE HCL [Concomitant]
     Indication: PRODUCT USED FOR UNKNOWN INDICATION
     Dosage: 100 MG, UNKNOWN
     Route: 048
  3. ALOSENN                            /00476901/ [Concomitant]
     Indication: PRODUCT USED FOR UNKNOWN INDICATION
     Dosage: 0.5 G, UNKNOWN
     Route: 048
  4. LANTHANUM CARBONATE [Suspect]
     Indication: HYPERPHOSPHATAEMIA
     Dosage: 750 MG, 1X/DAY:QD
     Route: 048
     Dates: start: 20100408, end: 20101115
  5. ZANTAC [Concomitant]
     Indication: PRODUCT USED FOR UNKNOWN INDICATION
     Dosage: 150 MG, UNKNOWN
     Route: 058
  6. LANTHANUM CARBONATE [Suspect]
     Dosage: 1500 MG, 1X/DAY:QD
     Route: 048
     Dates: start: 20101116
  7. CALCIUM CARBONATE [Concomitant]
     Indication: HYPERPHOSPHATAEMIA
     Dosage: 1.5 G, UNKNOWN
     Route: 048
     Dates: start: 20050301
  8. ALFAROL [Concomitant]
     Indication: PRODUCT USED FOR UNKNOWN INDICATION
     Dosage: 0.25 ?G, UNKNOWN
     Route: 048
     Dates: start: 20060829, end: 20110318
  9. ASPIRIN [Concomitant]
     Indication: PRODUCT USED FOR UNKNOWN INDICATION
     Dosage: 100 MG, UNKNOWN
     Route: 048
  10. LIVALO [Concomitant]
     Indication: PRODUCT USED FOR UNKNOWN INDICATION
     Dosage: 2 MG, UNKNOWN
     Route: 048
  11. ALFAROL [Concomitant]
     Dosage: 0.5 ?G, UNKNOWN
     Route: 048
     Dates: start: 20110322, end: 20110101
  12. ARGAMATE [Concomitant]
     Indication: PRODUCT USED FOR UNKNOWN INDICATION
     Dosage: 50 MG, UNKNOWN
     Route: 048
  13. RISUMIC [Concomitant]
     Indication: PRODUCT USED FOR UNKNOWN INDICATION
     Dosage: 10 MG, UNKNOWN
     Route: 048
  14. ALFAROL [Concomitant]
     Dosage: 025 ?G, UNKNOWN
     Route: 048
     Dates: start: 20110418, end: 20111212
  15. ALFAROL [Concomitant]
     Dosage: 1 ?G, 1X/WEEK
     Route: 048
     Dates: start: 20111214
  16. CINACALCET HYDROCHLORIDE [Concomitant]
     Indication: HYPERPARATHYROIDISM SECONDARY
     Dosage: 100 MG, 1X/WEEK
     Route: 048
     Dates: start: 20100125

REACTIONS (4)
  - ENTEROCOLITIS INFECTIOUS [None]
  - PERIPHERAL ARTERIAL OCCLUSIVE DISEASE [None]
  - VOMITING [None]
  - ANGINA PECTORIS [None]
